FAERS Safety Report 9236213 (Version 1)
Quarter: 2013Q2

REPORT INFORMATION
  Report Type: Spontaneous
  Country: CH (occurrence: CH)
  Receive Date: 20130417
  Receipt Date: 20130417
  Transmission Date: 20140414
  Serious: Yes (Other)
  Sender: FDA-Public Use
  Company Number: CH-ELI_LILLY_AND_COMPANY-CH201304002657

PATIENT
  Age: 36 Year
  Sex: Female
  Weight: 114 kg

DRUGS (3)
  1. FLUOXETINE [Suspect]
     Indication: PERSONALITY DISORDER
     Dosage: 40 MG, QD
     Route: 048
     Dates: start: 2012
  2. TOPIRAMAT [Concomitant]
     Indication: PERSONALITY DISORDER
     Dosage: 100 MG, QD
     Route: 048
     Dates: start: 2012
  3. METHADONE [Concomitant]
     Indication: DRUG ABUSE
     Dosage: 10 MG, QD
     Route: 048
     Dates: start: 2012

REACTIONS (1)
  - Exposure during pregnancy [Recovered/Resolved]
